FAERS Safety Report 7585424-6 (Version None)
Quarter: 2011Q3

REPORT INFORMATION
  Report Type: 
  Country: None (occurrence: None)
  Receive Date: 20110701
  Receipt Date: 20110608
  Transmission Date: 20111222
  Serious: Yes (Hospitalization)
  Sender: FDA-Public Use
  Company Number: US-BAYER-201030315NA

PATIENT
  Age: 16 Year
  Sex: Female
  Weight: 54.422 kg

DRUGS (3)
  1. YAZ [Suspect]
     Indication: CONTRACEPTION
     Dosage: UNK UNK, QD
     Route: 048
     Dates: start: 20070601, end: 20071201
  2. PHENERGAN HCL [Concomitant]
  3. DEMEROL [Concomitant]

REACTIONS (3)
  - CHOLELITHIASIS [None]
  - CHOLECYSTITIS [None]
  - ABDOMINAL PAIN UPPER [None]
